FAERS Safety Report 9854972 (Version 1)
Quarter: 2013Q4

REPORT INFORMATION
  Report Type: Spontaneous
  Country: US (occurrence: None)
  Receive Date: 20131226
  Receipt Date: 20131226
  Transmission Date: 20140711
  Serious: Yes (Other)
  Sender: FDA-Public Use
  Company Number: PHEH2013US012496

PATIENT
  Age: 73 Year
  Sex: Female

DRUGS (2)
  1. AFINITOR (RAD) TABLET, 10MG [Suspect]
     Indication: BREAST CANCER
     Route: 048
     Dates: start: 20120901, end: 20130607
  2. ASPIRIN (ACETYLSALICYLIC ACID) [Concomitant]

REACTIONS (1)
  - Gastrointestinal haemorrhage [None]
